FAERS Safety Report 4460781-8 (Version None)
Quarter: 2004Q3

REPORT INFORMATION
  Report Type: 
  Country: None (occurrence: None)
  Receive Date: 20040923
  Receipt Date: 20040913
  Transmission Date: 20050211
  Serious: Yes (Life-Threatening, Other)
  Sender: FDA-Public Use
  Company Number: 2004-0007431

PATIENT
  Age: 50 Year
  Sex: Female
  Weight: 46.7205 kg

DRUGS (6)
  1. EMTRIVA (EMTRICITABINE) (200 MG, CAPSULE) [Suspect]
     Indication: HIV INFECTION
     Dosage: 200 MG, ORAL
     Route: 048
     Dates: start: 20031020
  2. VIREAD(TENOFOVIR DISOPROXIL FUMARATE) (300 MG, TABLET) [Suspect]
     Indication: HIV INFECTION
     Dosage: 300 MG, 1 IN 1 D, ORAL
     Route: 048
     Dates: start: 20031020, end: 20040528
  3. REYATAZ [Concomitant]
  4. NORVIR [Concomitant]
  5. BACTRIM DS [Concomitant]
  6. ELAVIL [Concomitant]

REACTIONS (3)
  - BLOOD BICARBONATE DECREASED [None]
  - BLOOD POTASSIUM DECREASED [None]
  - RENAL FAILURE ACUTE [None]
